FAERS Safety Report 7058851-3 (Version None)
Quarter: 2010Q4

REPORT INFORMATION
  Report Type: 
  Country: None (occurrence: None)
  Receive Date: 20101022
  Receipt Date: 20101011
  Transmission Date: 20110411
  Serious: Yes (Hospitalization)
  Sender: FDA-Public Use
  Company Number: US-ELI_LILLY_AND_COMPANY-US201004002804

PATIENT
  Sex: Female

DRUGS (4)
  1. FORTEO [Suspect]
     Indication: OSTEOPOROSIS
     Dosage: 20 UG, DAILY (1/D)
  2. LISINOPRIL [Concomitant]
     Dosage: 40 MG, UNKNOWN
  3. ATENOLOL [Concomitant]
     Dosage: 50 MG, UNKNOWN
  4. VYTORIN [Concomitant]

REACTIONS (7)
  - BLOOD PRESSURE INCREASED [None]
  - CONSTIPATION [None]
  - CONTUSION [None]
  - INJECTION SITE ERYTHEMA [None]
  - INJECTION SITE PAIN [None]
  - MYOCARDIAL INFARCTION [None]
  - SURGERY [None]
